FAERS Safety Report 11095487 (Version 1)
Quarter: 2015Q2

REPORT INFORMATION
  Report Type: Spontaneous
  Country: GB (occurrence: GB)
  Receive Date: 20150506
  Receipt Date: 20150506
  Transmission Date: 20150821
  Serious: Yes (Hospitalization, Other)
  Sender: FDA-Public Use
  Company Number: PHHY2015GB050633

PATIENT
  Age: 49 Year
  Sex: Male
  Weight: 94 kg

DRUGS (1)
  1. AMOXICILLIN TRIHYDRATE [Suspect]
     Active Substance: AMOXICILLIN
     Indication: TOOTH INFECTION
     Dosage: 500 MG, TID
     Route: 048
     Dates: start: 20150220, end: 20150226

REACTIONS (3)
  - Pruritus [Recovered/Resolved]
  - Swelling [Recovered/Resolved]
  - Rash generalised [Recovered/Resolved]

NARRATIVE: CASE EVENT DATE: 20150221
